FAERS Safety Report 23533195 (Version 2)
Quarter: 2024Q2

REPORT INFORMATION
  Report Type: Report from Study
  Country: US (occurrence: US)
  Receive Date: 20240216
  Receipt Date: 20240410
  Transmission Date: 20240716
  Serious: Yes (Other)
  Sender: FDA-Public Use
  Company Number: US-ARGENX-2023-ARGX-US001250

PATIENT

DRUGS (3)
  1. VYVGART [Suspect]
     Active Substance: EFGARTIGIMOD ALFA-FCAB
     Indication: Myasthenia gravis
     Dosage: 920 MG, ONCE WEEKLY FOR 4 WEEK
     Route: 042
     Dates: start: 20230228
  2. VYVGART [Suspect]
     Active Substance: EFGARTIGIMOD ALFA-FCAB
     Dosage: 1000 MG, ONCE WEEKLY FOR 4 WEEK, 400MG/20ML
     Route: 042
     Dates: start: 20230228
  3. HYDROCORTISONE [Concomitant]
     Active Substance: HYDROCORTISONE
     Indication: Product used for unknown indication
     Dosage: TOPICAL
     Route: 065

REACTIONS (11)
  - Choking [Recovering/Resolving]
  - Procedural headache [Unknown]
  - Dysphonia [Not Recovered/Not Resolved]
  - Dysphagia [Not Recovered/Not Resolved]
  - Muscular weakness [Not Recovered/Not Resolved]
  - Symptom recurrence [Unknown]
  - Dyspnoea exertional [Recovering/Resolving]
  - Dysarthria [Unknown]
  - Fatigue [Recovering/Resolving]
  - Asthenia [Unknown]
  - Rash [Recovered/Resolved]
